FAERS Safety Report 9085362 (Version 1)
Quarter: 2013Q1

REPORT INFORMATION
  Report Type: Report from Study
  Country: US (occurrence: US)
  Receive Date: 20130131
  Receipt Date: 20130131
  Transmission Date: 20140127
  Serious: No
  Sender: FDA-Public Use
  Company Number: US-ABBOTT-12P-163-0986387-00

PATIENT
  Age: 29 Year
  Sex: Female

DRUGS (10)
  1. HUMIRA [Suspect]
     Indication: RHEUMATOID ARTHRITIS
     Dosage: INITIAL DOSE
     Route: 058
     Dates: start: 20120918
  2. GABAPENTIN [Concomitant]
     Indication: FIBROMYALGIA
  3. MAXID [Concomitant]
     Indication: INFLAMMATION
     Dosage: 50MG DAILY
  4. NIFEDIPINE [Concomitant]
     Indication: RAYNAUD^S PHENOMENON
     Dosage: 1-3 TABLETS
  5. ABILIFY [Concomitant]
     Indication: BIPOLAR DISORDER
     Dosage: AT BEDTIME
  6. MELOXICAM [Concomitant]
     Indication: RHEUMATOID ARTHRITIS
     Dosage: 15 MG DAILY
  7. FLUOXETINE [Concomitant]
     Indication: RHEUMATOID ARTHRITIS
  8. PIROXICAM [Concomitant]
     Indication: PRODUCT USED FOR UNKNOWN INDICATION
     Dosage: 20MG DAILY
  9. PLAQUENIL [Concomitant]
     Indication: RHEUMATOID ARTHRITIS
     Dosage: 200MG DAILY
  10. ESTROPIPATE [Concomitant]
     Indication: HORMONE REPLACEMENT THERAPY
     Dosage: 0.625MG DAILY

REACTIONS (1)
  - Pain [Not Recovered/Not Resolved]
